FAERS Safety Report 9338465 (Version 3)
Quarter: 2014Q1

REPORT INFORMATION
  Report Type: Spontaneous
  Country: MX (occurrence: MX)
  Receive Date: 20130610
  Receipt Date: 20140320
  Transmission Date: 20141002
  Serious: Yes (Other)
  Sender: FDA-Public Use
  Company Number: MX-JNJFOC-20130522300

PATIENT
  Sex: 0

DRUGS (2)
  1. DOXORUBICIN [Suspect]
     Indication: NEOPLASM MALIGNANT
     Route: 058
  2. DAUNORUBICIN [Suspect]
     Indication: NEOPLASM MALIGNANT
     Route: 058

REACTIONS (3)
  - Left ventricular dysfunction [Unknown]
  - Incorrect route of drug administration [Unknown]
  - Off label use [Unknown]
